FAERS Safety Report 5757914-X (Version None)
Quarter: 2008Q2

REPORT INFORMATION
  Report Type: 
  Country: None (occurrence: None)
  Receive Date: 20080602
  Receipt Date: 20080602
  Transmission Date: 20081010
  Serious: No
  Sender: FDA-Public Use
  Company Number: None

PATIENT
  Age: 46 Year
  Sex: Male
  Weight: 92.9874 kg

DRUGS (1)
  1. CIALIS [Suspect]
     Indication: DRUG USE FOR UNKNOWN INDICATION
     Dosage: 20 MG. ONE TIME
     Dates: start: 20080530, end: 20080530

REACTIONS (8)
  - CHOKING SENSATION [None]
  - DYSPNOEA [None]
  - ERYTHEMA [None]
  - FATIGUE [None]
  - FLUSHING [None]
  - HEADACHE [None]
  - HYPERSOMNIA [None]
  - MYALGIA [None]
